FAERS Safety Report 8764190 (Version 1)
Quarter: 2012Q4

REPORT INFORMATION
  Report Type: Spontaneous
  Country: US (occurrence: None)
  Receive Date: 20120828
  Receipt Date: 20120828
  Transmission Date: 20130627
  Serious: Yes (Hospitalization)
  Sender: FDA-Public Use
  Company Number: MIN-00862

PATIENT
  Age: 61 Year
  Sex: Male

DRUGS (1)
  1. MINOCYCLINE HYDROCHLORIDE [Suspect]
     Indication: ACNE
     Route: 048

REACTIONS (14)
  - Dehydration [None]
  - Orthostatic hypotension [None]
  - Dyspnoea [None]
  - Asthenia [None]
  - Fatigue [None]
  - Ataxia [None]
  - Fall [None]
  - Rosacea [None]
  - Scleral pigmentation [None]
  - Skin discolouration [None]
  - Toxicity to various agents [None]
  - Condition aggravated [None]
  - Blood pressure increased [None]
  - Normochromic normocytic anaemia [None]
